FAERS Safety Report 8165104-9 (Version None)
Quarter: 2012Q1

REPORT INFORMATION
  Report Type: 
  Country: None (occurrence: None)
  Receive Date: 20120227
  Receipt Date: 20120215
  Transmission Date: 20120608
  Serious: Yes (Other)
  Sender: FDA-Public Use
  Company Number: US-ACCORD-012499

PATIENT
  Age: 63 Year
  Sex: Male

DRUGS (4)
  1. CARBOPLATIN [Concomitant]
     Indication: NON-SMALL CELL LUNG CANCER STAGE IIIB
     Dosage: AUC=5, 6 CYCLES
  2. BEVACIZUMAB [Concomitant]
     Indication: NON-SMALL CELL LUNG CANCER STAGE IIIB
     Dosage: 6 CYCLES
  3. FLUOROURACIL [Suspect]
     Indication: COLORECTAL CANCER STAGE III
  4. PACLITAXEL [Suspect]
     Indication: NON-SMALL CELL LUNG CANCER STAGE IIIB
     Dosage: 6 CYCLES

REACTIONS (4)
  - COLORECTAL CANCER STAGE III [None]
  - METASTASES TO CENTRAL NERVOUS SYSTEM [None]
  - ARTERIOSPASM CORONARY [None]
  - LUNG CARCINOMA CELL TYPE UNSPECIFIED RECURRENT [None]
